FAERS Safety Report 15243907 (Version 2)
Quarter: 2020Q1

REPORT INFORMATION
  Report Type: Report from Study
  Country: US (occurrence: US)
  Receive Date: 20180806
  Receipt Date: 20200324
  Transmission Date: 20200409
  Serious: Yes (Other)
  Sender: FDA-Public Use
  Company Number: US-SA-2018SA211707

PATIENT
  Age: 49 Year
  Sex: Female

DRUGS (4)
  1. SARILUMAB [Suspect]
     Active Substance: SARILUMAB
     Dosage: 200 MG, QOW
     Route: 058
     Dates: start: 2019, end: 202002
  2. CELEBREX [Concomitant]
     Active Substance: CELECOXIB
     Indication: RHEUMATOID ARTHRITIS
  3. SARILUMAB [Suspect]
     Active Substance: SARILUMAB
     Indication: RHEUMATOID ARTHRITIS
     Dosage: 200 MG, QOW
     Route: 058
     Dates: start: 20180601, end: 2019
  4. SARILUMAB [Suspect]
     Active Substance: SARILUMAB
     Dosage: UNK
     Route: 058
     Dates: start: 2020

REACTIONS (7)
  - Rectal haemorrhage [Not Recovered/Not Resolved]
  - Tooth infection [Recovered/Resolved]
  - Product dose omission [Unknown]
  - Herpes zoster [Recovered/Resolved]
  - Mouth ulceration [Unknown]
  - Cheilitis [Unknown]
  - Spinal fusion surgery [Recovered/Resolved]

NARRATIVE: CASE EVENT DATE: 201807
